FAERS Safety Report 20148960 (Version 1)
Quarter: 2021Q4

REPORT INFORMATION
  Report Type: Spontaneous
  Country: US (occurrence: US)
  Receive Date: 20211204
  Receipt Date: 20211204
  Transmission Date: 20220303
  Serious: No
  Sender: FDA-Public Use
  Company Number: US-SA-SAC20211130000286

PATIENT
  Sex: Female

DRUGS (12)
  1. AUBAGIO [Suspect]
     Active Substance: TERIFLUNOMIDE
     Indication: Migraine without aura
     Dosage: 1 DF, QD
     Route: 048
  2. LYRICA [Concomitant]
     Active Substance: PREGABALIN
     Dosage: 200MG
  3. METHADONE [Concomitant]
     Active Substance: METHADONE HYDROCHLORIDE
  4. MODAFINIL [Concomitant]
     Active Substance: MODAFINIL
  5. ALVESCO [Concomitant]
     Active Substance: CICLESONIDE
  6. MONTELUKAST [Concomitant]
     Active Substance: MONTELUKAST SODIUM
     Dosage: UNK
  7. NORCO [Concomitant]
     Active Substance: ACETAMINOPHEN\HYDROCODONE BITARTRATE
     Dosage: 10-325MG
  8. PROAIR HFA [Concomitant]
     Active Substance: ALBUTEROL SULFATE
  9. QNASL [Concomitant]
     Active Substance: BECLOMETHASONE DIPROPIONATE
  10. ZOLPIDEM [Concomitant]
     Active Substance: ZOLPIDEM TARTRATE
  11. OXCARBAZEPINE [Concomitant]
     Active Substance: OXCARBAZEPINE
  12. PRENATAL PLUS [Concomitant]
     Active Substance: .ALPHA.-TOCOPHEROL ACETATE, DL-\.BETA.-CAROTENE\ASCORBIC ACID\CALCIUM CARBONATE\CHOLECALCIFEROL\CUPR

REACTIONS (1)
  - Product dose omission issue [Unknown]
